FAERS Safety Report 7468792-5 (Version None)
Quarter: 2011Q2

REPORT INFORMATION
  Report Type: 
  Country: None (occurrence: None)
  Receive Date: 20110510
  Receipt Date: 20110502
  Transmission Date: 20111010
  Serious: No
  Sender: FDA-Public Use
  Company Number: US-BIOGENIDEC-2011BI016439

PATIENT
  Age: 53 Year
  Sex: Female

DRUGS (3)
  1. DEPRESSION MEDICATION (NOS) [Concomitant]
     Indication: DEPRESSION
  2. BACLOFEN [Concomitant]
     Indication: MUSCLE SPASMS
  3. TYSABRI [Suspect]
     Indication: MULTIPLE SCLEROSIS
     Route: 042
     Dates: start: 20100701

REACTIONS (6)
  - DIPLOPIA [None]
  - LACRIMATION INCREASED [None]
  - MUSCLE SPASMS [None]
  - DRY EYE [None]
  - BALANCE DISORDER [None]
  - VIOLENCE-RELATED SYMPTOM [None]
